FAERS Safety Report 4520302-8 (Version None)
Quarter: 2004Q4

REPORT INFORMATION
  Report Type: 
  Country: None (occurrence: None)
  Receive Date: 20041203
  Receipt Date: 20041203
  Transmission Date: 20050328
  Serious: Yes (Hospitalization)
  Sender: FDA-Public Use
  Company Number: None

PATIENT
  Sex: Male

DRUGS (15)
  1. CYTOXAN [Suspect]
     Indication: DIFFUSE LARGE B-CELL LYMPHOMA
     Dosage: SEE IMAGE
  2. DOXORUBICIN HYDROCHLORIDE [Suspect]
     Dosage: SEE IMAGE
  3. VINCRISTINE [Suspect]
     Dosage: SEE IMAGE
  4. PREDNISONE [Suspect]
     Dosage: SEE IMAGE
  5. VELCADE [Suspect]
     Dosage: SEE IMAGE
  6. RITUXIMAB [Suspect]
  7. PROTONIX [Concomitant]
  8. LIPITOR [Concomitant]
  9. SENEKOT-S [Concomitant]
  10. MOM [Concomitant]
  11. MEGACE [Concomitant]
  12. NEULASTA [Concomitant]
  13. AMBIEN [Concomitant]
  14. RESTORIL [Concomitant]
  15. BACTRIM [Concomitant]

REACTIONS (1)
  - ATRIAL FIBRILLATION [None]
